FAERS Safety Report 9513977 (Version 6)
Quarter: 2014Q3

REPORT INFORMATION
  Report Type: Spontaneous
  Country: US (occurrence: US)
  Receive Date: 20130910
  Receipt Date: 20140929
  Transmission Date: 20150326
  Serious: Yes (Life-Threatening, Congenital Anomaly, Other)
  Sender: FDA-Public Use
  Company Number: US-ELI_LILLY_AND_COMPANY-US201309001406

PATIENT
  Age: 0 Year

DRUGS (1)
  1. PROZAC [Suspect]
     Active Substance: FLUOXETINE HYDROCHLORIDE
     Indication: PRODUCT USED FOR UNKNOWN INDICATION
     Dosage: 1 DF, UNKNOWN
     Route: 064

REACTIONS (22)
  - Congenital cardiovascular anomaly [Unknown]
  - Respiratory distress [Recovered/Resolved]
  - Foetal exposure during pregnancy [Unknown]
  - Blood urea increased [Recovering/Resolving]
  - Blood sodium decreased [Recovering/Resolving]
  - Pulmonary vascular disorder [Recovered/Resolved]
  - Fallot^s tetralogy [Unknown]
  - Congenital pulmonary valve atresia [Unknown]
  - Mitral valve incompetence [Unknown]
  - Pulmonary oedema neonatal [Recovered/Resolved]
  - Pulmonary valve stenosis [Unknown]
  - Hyperoxia [Recovered/Resolved]
  - Pulmonary hypoplasia [Unknown]
  - Post procedural haemorrhage [Unknown]
  - Hypoglycaemia [Recovered/Resolved]
  - Cardiomegaly [Unknown]
  - Congenital tricuspid valve incompetence [Unknown]
  - Post procedural haematoma [Unknown]
  - Body temperature increased [Recovered/Resolved]
  - Patent ductus arteriosus [Unknown]
  - Ventricular septal defect [Unknown]
  - Ventricular fibrillation [Recovered/Resolved]

NARRATIVE: CASE EVENT DATE: 20030220
